FAERS Safety Report 4732844-0 (Version None)
Quarter: 2005Q3

REPORT INFORMATION
  Report Type: 
  Country: None (occurrence: None)
  Receive Date: 20050725
  Receipt Date: 20040607
  Transmission Date: 20060218
  Serious: Yes (Hospitalization)
  Sender: FDA-Public Use
  Company Number: WAES 0406USA00645

PATIENT
  Age: 73 Year
  Weight: 61.2356 kg

DRUGS (6)
  1. VIOXX [Suspect]
     Indication: OSTEOARTHRITIS
     Dosage: 25 MG/BID/PO
     Route: 048
     Dates: start: 20040517, end: 20040531
  2. COZAAR [Concomitant]
  3. ASPIRIN [Concomitant]
  4. ATENOLOL [Concomitant]
  5. CALCIUM GLUCONATE [Concomitant]
  6. VITAMIN E [Concomitant]

REACTIONS (1)
  - ACUTE PULMONARY OEDEMA [None]
